FAERS Safety Report 8760572 (Version 2)
Quarter: 2012Q4

REPORT INFORMATION
  Report Type: Spontaneous
  Country: DK (occurrence: None)
  Receive Date: 20120820
  Receipt Date: 20120912
  Transmission Date: 20130627
  Serious: Yes (Other)
  Sender: FDA-Public Use
  Company Number: 2012MA010021

PATIENT
  Age: 38 Year
  Sex: Male

DRUGS (1)
  1. CITALOPRAM HYDROBROMIDE [Suspect]
     Indication: ANXIETY
     Route: 048
     Dates: end: 201204

REACTIONS (6)
  - Off label use [None]
  - Mental impairment [None]
  - Suicidal ideation [None]
  - Impaired work ability [None]
  - Activities of daily living impaired [None]
  - Prescribed overdose [None]
